FAERS Safety Report 16149617 (Version 1)
Quarter: 2019Q2

REPORT INFORMATION
  Report Type: Spontaneous
  Country: TW (occurrence: TW)
  Receive Date: 20190402
  Receipt Date: 20190402
  Transmission Date: 20190711
  Serious: Yes (Other)
  Sender: FDA-Public Use
  Company Number: TW-ASTRAZENECA-2019SE47455

PATIENT
  Age: 36 Year
  Sex: Male

DRUGS (1)
  1. IMFINZI [Suspect]
     Active Substance: DURVALUMAB
     Dosage: 10 MG /KG
     Route: 042
     Dates: start: 20180321, end: 20190320

REACTIONS (5)
  - Back pain [Unknown]
  - Radiation pneumonitis [Unknown]
  - Cough [Unknown]
  - Metastases to bone [Unknown]
  - Pyrexia [Recovered/Resolved]

NARRATIVE: CASE EVENT DATE: 201806
